FAERS Safety Report 7617735-X (Version None)
Quarter: 2011Q3

REPORT INFORMATION
  Report Type: 
  Country: None (occurrence: None)
  Receive Date: 20110718
  Receipt Date: 20110712
  Transmission Date: 20111222
  Serious: Yes (Death, Other)
  Sender: FDA-Public Use
  Company Number: PHHY2011AU62238

PATIENT
  Age: 34 Year
  Sex: Male

DRUGS (4)
  1. METHYLENEDIOXYMETHAMPHETAMINE [Interacting]
     Dosage: UNK
  2. CITALOPRAM HYDROBROMIDE [Suspect]
     Dosage: UNK
  3. MONOACETYL MORPHINE [Interacting]
     Dosage: UNK
  4. ETHANOL [Interacting]
     Dosage: UNK

REACTIONS (4)
  - DRUG INTERACTION [None]
  - HEPATIC STEATOSIS [None]
  - TOXICITY TO VARIOUS AGENTS [None]
  - PROSTATITIS [None]
